APPROVED DRUG PRODUCT: TEMOZOLOMIDE
Active Ingredient: TEMOZOLOMIDE
Strength: 250MG
Dosage Form/Route: CAPSULE;ORAL
Application: A205227 | Product #006
Applicant: EXTROVIS AG
Approved: Jun 29, 2016 | RLD: No | RS: No | Type: DISCN